FAERS Safety Report 7808657-X (Version None)
Quarter: 2011Q4

REPORT INFORMATION
  Report Type: 
  Country: None (occurrence: None)
  Receive Date: 20111012
  Receipt Date: 20110930
  Transmission Date: 20120403
  Serious: Yes (Other)
  Sender: FDA-Public Use
  Company Number: CELGENEUS-087-21880-11043478

PATIENT
  Sex: Male

DRUGS (38)
  1. REVLIMID [Suspect]
     Dosage: 10 MILLIGRAM
     Route: 048
     Dates: start: 20110302, end: 20110315
  2. URIEF [Concomitant]
     Dosage: 8 MILLIGRAM
     Route: 048
     Dates: start: 20091208
  3. URIEF [Concomitant]
     Dosage: 8 MILLIGRAM
     Route: 048
     Dates: start: 20110302
  4. LANSOPRAZOLE [Concomitant]
     Indication: PROPHYLAXIS
     Dosage: 30 MILLIGRAM
     Route: 048
     Dates: start: 20101203
  5. REVLIMID [Suspect]
     Dosage: 10 MILLIGRAM
     Route: 048
     Dates: start: 20110202, end: 20110215
  6. REVLIMID [Suspect]
     Dosage: 10 MILLIGRAM
     Route: 048
     Dates: start: 20110608, end: 20110613
  7. LENADEX [Suspect]
     Dosage: 40 MILLIGRAM
     Route: 048
     Dates: start: 20101215, end: 20101215
  8. LENADEX [Suspect]
     Dosage: 40 MILLIGRAM
     Route: 048
     Dates: start: 20110105, end: 20110106
  9. MAGNESIUM SULFATE [Concomitant]
     Dosage: 660 MILLIGRAM
     Route: 048
     Dates: start: 20081107
  10. REVLIMID [Suspect]
     Indication: MULTIPLE MYELOMA
     Dosage: 10 MILLIGRAM
     Route: 048
     Dates: start: 20101203, end: 20101223
  11. REVLIMID [Suspect]
     Dosage: 10 MILLIGRAM
     Route: 048
     Dates: start: 20110330, end: 20110413
  12. LENADEX [Suspect]
     Indication: MULTIPLE MYELOMA
     Dosage: 40 MILLIGRAM
     Route: 048
     Dates: start: 20101203, end: 20101203
  13. SPIRIVA [Concomitant]
     Route: 055
     Dates: start: 20110105
  14. REVLIMID [Suspect]
     Dosage: 10 MILLIGRAM
     Route: 048
     Dates: start: 20110105, end: 20110118
  15. REVLIMID [Suspect]
     Dosage: 10 MILLIGRAM
     Route: 048
     Dates: start: 20110525, end: 20110531
  16. LENADEX [Suspect]
     Dosage: 40 MILLIGRAM
     Route: 048
     Dates: start: 20101210, end: 20101210
  17. LENADEX [Suspect]
     Dosage: 40 MILLIGRAM
     Route: 048
     Dates: start: 20110302, end: 20110305
  18. HOKUNALIN:TAPE [Concomitant]
     Dosage: 2 MILLIGRAM
     Route: 065
     Dates: start: 20090209
  19. HOKUNALIN:TAPE [Concomitant]
     Route: 065
     Dates: start: 20110105
  20. SPIRIVA [Concomitant]
     Dosage: 18 MICROGRAM
     Route: 055
     Dates: start: 20090203
  21. CIPROFLOXACIN HCL [Concomitant]
     Dosage: 600 MILLIGRAM
     Route: 048
     Dates: start: 20110119, end: 20110125
  22. LENADEX [Suspect]
     Dosage: 40 MILLIGRAM
     Route: 048
     Dates: start: 20110330, end: 20110331
  23. MAGNESIUM SULFATE [Concomitant]
     Dosage: 660 MILLIGRAM
     Route: 048
     Dates: start: 20110302
  24. LANSOPRAZOLE [Concomitant]
     Dosage: 30 MILLIGRAM
     Route: 048
     Dates: start: 20110302
  25. ASPIRIN [Concomitant]
     Indication: PROPHYLAXIS
     Dosage: 100 MILLIGRAM
     Route: 048
     Dates: start: 20101203, end: 20110201
  26. LENDORMIN D [Concomitant]
     Dosage: .25 MILLIGRAM
     Route: 048
     Dates: start: 20081115
  27. LASIX [Concomitant]
     Dosage: 10 MILLIGRAM
     Route: 041
     Dates: start: 20101210, end: 20101210
  28. LEUPROLIDE ACETATE [Concomitant]
     Dosage: 3.75 MILLIGRAM
     Route: 058
     Dates: start: 20101227, end: 20101227
  29. LEUPROLIDE ACETATE [Concomitant]
     Dosage: 3.75 MILLIGRAM
     Route: 058
     Dates: start: 20110202, end: 20110202
  30. LENADEX [Suspect]
     Dosage: 40 MILLIGRAM
     Route: 048
     Dates: start: 20110202, end: 20110203
  31. HOKUNALIN:TAPE [Concomitant]
     Dosage: 2 MILLIGRAM
     Route: 061
     Dates: start: 20110302
  32. SPIRIVA [Concomitant]
     Dosage: 18 MICROGRAM
     Route: 055
     Dates: start: 20110302
  33. LENDORMIN D [Concomitant]
     Dosage: .25 MILLIGRAM
     Route: 048
     Dates: start: 20110302
  34. ARICEPT [Concomitant]
     Dosage: 3 MILLIGRAM
     Route: 048
     Dates: start: 20110318
  35. ALLOPURINOL [Concomitant]
     Dosage: 100 MILLIGRAM
     Route: 048
     Dates: start: 20060622
  36. PRIMPERAN TAB [Concomitant]
     Indication: PROPHYLAXIS
     Dosage: 10 MILLIGRAM
     Route: 041
     Dates: start: 20101211, end: 20101211
  37. FAMOTIDINE [Concomitant]
     Indication: PROPHYLAXIS
     Dosage: 20 MILLIGRAM
     Route: 048
     Dates: start: 20110427
  38. ENSURE [Concomitant]
     Indication: MULTIPLE MYELOMA
     Dosage: 750 MILLILITER
     Route: 048
     Dates: start: 20110608

REACTIONS (12)
  - ANAEMIA [None]
  - UPPER RESPIRATORY TRACT INFLAMMATION [None]
  - DECREASED APPETITE [None]
  - NASOPHARYNGITIS [None]
  - DELIRIUM [None]
  - UPPER RESPIRATORY TRACT INFECTION [None]
  - PLATELET COUNT DECREASED [None]
  - BACK PAIN [None]
  - URINARY RETENTION [None]
  - CONSTIPATION [None]
  - ECZEMA [None]
  - RASH [None]
